FAERS Safety Report 6269175-6 (Version None)
Quarter: 2009Q3

REPORT INFORMATION
  Report Type: 
  Country: None (occurrence: None)
  Receive Date: 20090715
  Receipt Date: 20090703
  Transmission Date: 20100115
  Serious: Yes (Hospitalization)
  Sender: FDA-Public Use
  Company Number: FR-PFIZER INC-2009235774

PATIENT
  Age: 52 Year

DRUGS (5)
  1. DOXORUBICIN HCL [Suspect]
     Indication: HODGKIN'S DISEASE
     Dosage: 1 CYCLE EVERY 15 DAYS
     Route: 042
     Dates: start: 20090120
  2. BLEOMYCIN [Suspect]
     Indication: HODGKIN'S DISEASE
     Dosage: 18.9 MG, CYCLIC EVERY 15 DAYS
     Route: 042
     Dates: start: 20090120, end: 20090414
  3. VELBE [Suspect]
     Indication: HODGKIN'S DISEASE
     Dosage: CICLIC EVERY 15 DAYS
     Route: 042
     Dates: start: 20090120
  4. DETICENE [Suspect]
     Indication: HODGKIN'S DISEASE
     Dosage: CYCLIC EVERY 15 DAYS
     Route: 042
     Dates: start: 20090120
  5. ADRENALIN [Concomitant]
     Indication: HODGKIN'S DISEASE

REACTIONS (2)
  - COUGH [None]
  - INTERSTITIAL LUNG DISEASE [None]
